FAERS Safety Report 8001518-5 (Version None)
Quarter: 2011Q4

REPORT INFORMATION
  Report Type: 
  Country: None (occurrence: None)
  Receive Date: 20111222
  Receipt Date: 20111216
  Transmission Date: 20120403
  Serious: Yes (Other)
  Sender: FDA-Public Use
  Company Number: US-JNJFOC-20100804130

PATIENT
  Sex: Female

DRUGS (1)
  1. LEVAQUIN [Suspect]
     Indication: INFECTION
     Route: 048
     Dates: start: 19990101, end: 20011230

REACTIONS (5)
  - TENDONITIS [None]
  - TENOSYNOVITIS [None]
  - SINUS TARSI SYNDROME [None]
  - TENDON DISORDER [None]
  - TENDON RUPTURE [None]
